FAERS Safety Report 10381888 (Version 3)
Quarter: 2014Q3

REPORT INFORMATION
  Report Type: Spontaneous
  Country: JP (occurrence: JP)
  Receive Date: 20140813
  Receipt Date: 20140919
  Transmission Date: 20150326
  Serious: Yes (Hospitalization)
  Sender: FDA-Public Use
  Company Number: JP-GLAXOSMITHKLINE-B1022759A

PATIENT
  Age: 37 Year
  Sex: Female

DRUGS (4)
  1. LYRICA [Concomitant]
     Active Substance: PREGABALIN
     Indication: POST HERPETIC NEURALGIA
     Route: 048
     Dates: start: 201403, end: 20140801
  2. LAMICTAL [Suspect]
     Active Substance: LAMOTRIGINE
     Indication: EPILEPSY
     Dosage: 25MG PER DAY
     Route: 048
     Dates: start: 20140715, end: 20140728
  3. DEPAS [Concomitant]
     Active Substance: ETIZOLAM
     Indication: ANXIETY
     Route: 048
     Dates: end: 20140801
  4. LAMICTAL [Suspect]
     Active Substance: LAMOTRIGINE
     Indication: EPILEPSY
     Dosage: 25MG TWICE PER DAY
     Route: 048
     Dates: start: 20140729, end: 20140801

REACTIONS (10)
  - Rash [Recovered/Resolved]
  - Mucous membrane disorder [Recovered/Resolved]
  - Lymphadenopathy [Unknown]
  - Pancytopenia [Recovered/Resolved]
  - Liver disorder [Recovering/Resolving]
  - White blood cell count decreased [Recovered/Resolved]
  - Oral mucosa erosion [Recovered/Resolved]
  - Conjunctival hyperaemia [Recovered/Resolved]
  - Skin disorder [Recovered/Resolved]
  - Liver disorder [Recovering/Resolving]

NARRATIVE: CASE EVENT DATE: 201407
